FAERS Safety Report 25768004 (Version 1)
Quarter: 2025Q3

REPORT INFORMATION
  Report Type: Spontaneous
  Country: US (occurrence: US)
  Receive Date: 20250905
  Receipt Date: 20250905
  Transmission Date: 20251021
  Serious: No
  Sender: DOMPE FARMACEUTICI
  Company Number: US-FARMAPROD-202505-1667

PATIENT
  Sex: Female
  Weight: 104.78 kg

DRUGS (36)
  1. OXERVATE [Suspect]
     Active Substance: CENEGERMIN-BKBJ
     Indication: Neurotrophic keratopathy
     Route: 047
     Dates: start: 20250318, end: 20250514
  2. ESOMEPRAZOLE MAGNESIUM [Concomitant]
     Active Substance: ESOMEPRAZOLE MAGNESIUM
  3. CETIRIZINE HCL [Concomitant]
     Active Substance: CETIRIZINE HYDROCHLORIDE
  4. ONDANSETRON [Concomitant]
     Active Substance: ONDANSETRON
  5. OMEPRAZOLE [Concomitant]
     Active Substance: OMEPRAZOLE
  6. ALBUTEROL SULFATE [Concomitant]
     Active Substance: ALBUTEROL SULFATE
  7. PRAMIPEXOLE DIHYDROCHLORIDE [Concomitant]
     Active Substance: PRAMIPEXOLE DIHYDROCHLORIDE
  8. SPIRONOLACTONE [Concomitant]
     Active Substance: SPIRONOLACTONE
  9. LOTEPREDNOL ETABONATE [Concomitant]
     Active Substance: LOTEPREDNOL ETABONATE
  10. AMOXICILLIN [Concomitant]
     Active Substance: AMOXICILLIN
  11. TORSEMIDE [Concomitant]
     Active Substance: TORSEMIDE
  12. GABAPENTIN [Concomitant]
     Active Substance: GABAPENTIN
  13. FERROUS SULFATE [Concomitant]
     Active Substance: FERROUS SULFATE
  14. JARDIANCE [Concomitant]
     Active Substance: EMPAGLIFLOZIN
  15. LOPERAMIDE AND SIMETHICONE [Concomitant]
  16. SARNA ORIGINAL [Concomitant]
  17. MAGNESIUM [Concomitant]
     Active Substance: MAGNESIUM
  18. ATORVASTATIN CALCIUM [Concomitant]
     Active Substance: ATORVASTATIN CALCIUM
  19. METHOCARBAMOL [Concomitant]
     Active Substance: METHOCARBAMOL
  20. PAIN RELIEVER [Concomitant]
  21. CALTRATE 600 PLUS D3 [Concomitant]
  22. MELATONIN [Concomitant]
     Active Substance: MELATONIN
  23. TRAZODONE HCL [Concomitant]
     Active Substance: TRAZODONE HYDROCHLORIDE
  24. CARBOXYMETHYLCELLULOSE SODIUM [Concomitant]
     Active Substance: CARBOXYMETHYLCELLULOSE SODIUM
  25. POTASSIUM CHLORIDE [Concomitant]
     Active Substance: POTASSIUM CHLORIDE
  26. MOXIFLOXACIN [Concomitant]
     Active Substance: MOXIFLOXACIN
  27. BUPRENORPHINE [Concomitant]
     Active Substance: BUPRENORPHINE
  28. BISOPROLOL FUMARATE [Concomitant]
     Active Substance: BISOPROLOL FUMARATE
  29. NALOXONE HCL [Concomitant]
     Active Substance: NALOXONE HYDROCHLORIDE
  30. ACETAMINOPHEN\HYDROCODONE [Concomitant]
     Active Substance: ACETAMINOPHEN\HYDROCODONE
  31. LEVOTHYROXINE SODIUM [Concomitant]
     Active Substance: LEVOTHYROXINE SODIUM
  32. WARFARIN SODIUM [Concomitant]
     Active Substance: WARFARIN SODIUM
  33. FLUTICASONE PROPIONATE [Concomitant]
     Active Substance: FLUTICASONE PROPIONATE
  34. KETOCONAZOLE [Concomitant]
     Active Substance: KETOCONAZOLE
  35. COENZYME Q10 [Concomitant]
     Active Substance: DIETARY SUPPLEMENT\UBIDECARENONE
  36. CHLORPHENIRAMINE MALEATE [Concomitant]
     Active Substance: CHLORPHENIRAMINE MALEATE

REACTIONS (1)
  - Therapy partial responder [Unknown]
